FAERS Safety Report 6253293-2 (Version None)
Quarter: 2009Q3

REPORT INFORMATION
  Report Type: 
  Country: None (occurrence: None)
  Receive Date: 20090701
  Receipt Date: 20090625
  Transmission Date: 20100115
  Serious: Yes (Other)
  Sender: FDA-Public Use
  Company Number: JP-GENENTECH-284027

PATIENT
  Age: 8 Year
  Sex: Male

DRUGS (6)
  1. MABTHERA [Suspect]
     Indication: IDIOPATHIC THROMBOCYTOPENIC PURPURA
     Dosage: 375 MG/M2, UNK
     Dates: start: 20060501, end: 20060501
  2. MABTHERA [Suspect]
     Dosage: 375 MG/M2, UNK
     Dates: start: 20070301, end: 20070301
  3. PREDNISOLONE [Concomitant]
     Indication: IDIOPATHIC THROMBOCYTOPENIC PURPURA
     Dosage: 0.25 MG/M2, QD
  4. PREDNISOLONE [Concomitant]
     Dosage: 0.125 MG/KG, QOD
     Dates: start: 20070301
  5. HYDROCORTISONE [Concomitant]
     Indication: PREMEDICATION
     Dosage: 200 MG, UNK
     Route: 042
  6. HYDROXYZINE [Concomitant]
     Indication: PREMEDICATION
     Dosage: 25 MG, UNK
     Route: 042

REACTIONS (1)
  - SERUM SICKNESS [None]
